FAERS Safety Report 9550139 (Version 2)
Quarter: 2013Q4

REPORT INFORMATION
  Report Type: Spontaneous
  Country: US (occurrence: US)
  Receive Date: 20130924
  Receipt Date: 20131007
  Transmission Date: 20140711
  Serious: Yes (Other)
  Sender: FDA-Public Use
  Company Number: US-PFIZER INC-2013270245

PATIENT
  Age: 29 Year
  Sex: Male

DRUGS (2)
  1. XYNTHA [Suspect]
     Indication: FACTOR VIII DEFICIENCY
     Dosage: 3800 IU, AS NEEDED
     Route: 042
     Dates: start: 20130918
  2. XYNTHA [Suspect]
     Indication: HAEMORRHAGE

REACTIONS (1)
  - Haemorrhage [Unknown]
